FAERS Safety Report 16410833 (Version 1)
Quarter: 2019Q2

REPORT INFORMATION
  Report Type: Spontaneous
  Country: US (occurrence: US)
  Receive Date: 20190610
  Receipt Date: 20190610
  Transmission Date: 20190711
  Serious: No
  Sender: FDA-Public Use
  Company Number: US-ABBVIE-18S-163-2599509-00

PATIENT
  Sex: Female

DRUGS (1)
  1. POTASSIUM CHLORIDE ER [Suspect]
     Active Substance: POTASSIUM CHLORIDE
     Indication: PRODUCT USED FOR UNKNOWN INDICATION
     Route: 048

REACTIONS (3)
  - Terminal state [Unknown]
  - Vomiting projectile [Unknown]
  - Haematemesis [Unknown]

NARRATIVE: CASE EVENT DATE: 2018
